FAERS Safety Report 13692346 (Version 7)
Quarter: 2019Q1

REPORT INFORMATION
  Report Type: Report from Study
  Country: JP (occurrence: JP)
  Receive Date: 20170627
  Receipt Date: 20190102
  Transmission Date: 20190417
  Serious: Yes (Death, Hospitalization, Other)
  Sender: FDA-Public Use
  Company Number: JP-BRISTOL-MYERS SQUIBB COMPANY-BMS-2017-056211

PATIENT
  Age: 54 Year
  Sex: Female
  Weight: 46 kg

DRUGS (1)
  1. IPILIMUMAB [Suspect]
     Active Substance: IPILIMUMAB
     Indication: MALIGNANT MELANOMA STAGE IV
     Dosage: 3 MG/KG, UNK
     Route: 041
     Dates: start: 20161026, end: 20170118

REACTIONS (3)
  - Gastritis [Recovered/Resolved]
  - Malignant neoplasm progression [Fatal]
  - Hypothyroidism [Fatal]

NARRATIVE: CASE EVENT DATE: 20161116
